FAERS Safety Report 25004857 (Version 1)
Quarter: 2025Q1

REPORT INFORMATION
  Report Type: Spontaneous
  Country: US (occurrence: US)
  Receive Date: 20250224
  Receipt Date: 20250224
  Transmission Date: 20250409
  Serious: Yes (Other)
  Sender: LANTHEUS MEDICAL IMAGING
  Company Number: US-LANTHEUS-LMI-2024-00092

PATIENT
  Age: 40 Year
  Sex: Male
  Weight: 70 kg

DRUGS (2)
  1. DEFINITY [Suspect]
     Active Substance: PERFLUTREN
     Indication: Echocardiogram
     Route: 042
     Dates: start: 20240123, end: 20240123
  2. LOSARTAN [Concomitant]
     Active Substance: LOSARTAN
     Indication: Product used for unknown indication
     Dosage: 25 MILLIGRAM, QD

REACTIONS (6)
  - Syncope [Recovered/Resolved]
  - Dizziness [Recovered/Resolved]
  - Erythema [Recovered/Resolved]
  - Dyspnoea [Recovered/Resolved]
  - Hyperhidrosis [Recovered/Resolved]
  - Heart rate increased [Recovered/Resolved]

NARRATIVE: CASE EVENT DATE: 20240123
